FAERS Safety Report 7123966-8 (Version None)
Quarter: 2010Q4

REPORT INFORMATION
  Report Type: 
  Country: None (occurrence: None)
  Receive Date: 20101126
  Receipt Date: 20101110
  Transmission Date: 20110411
  Serious: No
  Sender: FDA-Public Use
  Company Number: US-PFIZER INC-2010147040

PATIENT
  Sex: Female
  Weight: 7.076 kg

DRUGS (1)
  1. PREMARIN [Suspect]
     Dosage: 42.5 G, 1X/DAY
     Route: 061
     Dates: start: 20101109, end: 20101110

REACTIONS (2)
  - IRRITABILITY [None]
  - SKIN ODOUR ABNORMAL [None]
